FAERS Safety Report 6518592-5 (Version None)
Quarter: 2009Q4

REPORT INFORMATION
  Report Type: 
  Country: None (occurrence: None)
  Receive Date: 20091218
  Receipt Date: 20091203
  Transmission Date: 20100525
  Serious: Yes (Other)
  Sender: FDA-Public Use
  Company Number: 20090563

PATIENT
  Age: 68 Year
  Sex: Female
  Weight: 72.2 kg

DRUGS (1)
  1. VENOFER [Suspect]
     Indication: RENAL FAILURE CHRONIC
     Dosage: 100 MG TWO TIMES WEEK INTRAVENOUS
     Route: 042
     Dates: start: 20091120, end: 20091120

REACTIONS (3)
  - ANAPHYLACTOID REACTION [None]
  - BACK PAIN [None]
  - NECK PAIN [None]
